FAERS Safety Report 4396934-7 (Version None)
Quarter: 2004Q2

REPORT INFORMATION
  Report Type: 
  Country: None (occurrence: None)
  Receive Date: 20040621
  Receipt Date: 20031222
  Transmission Date: 20050107
  Serious: Yes (Hospitalization, Other)
  Sender: FDA-Public Use
  Company Number: USA-2003-0012242

PATIENT
  Age: 17 Year
  Sex: Male
  Weight: 99.8 kg

DRUGS (2)
  1. OXYCONTIN [Suspect]
     Dosage: MG
  2. HEROIN (DIAMORPHINE) [Suspect]

REACTIONS (3)
  - AGGRESSION [None]
  - DRUG ABUSER [None]
  - DRUG DEPENDENCE [None]
